FAERS Safety Report 5587638-3 (Version None)
Quarter: 2008Q1

REPORT INFORMATION
  Report Type: 
  Country: None (occurrence: None)
  Receive Date: 20080108
  Receipt Date: 20071227
  Transmission Date: 20080703
  Serious: Yes (Disabling)
  Sender: FDA-Public Use
  Company Number: OSCN-PR-0712L-0517

PATIENT
  Age: 65 Year
  Sex: Female

DRUGS (8)
  1. OMNISCAN [Suspect]
     Indication: DRUG USE FOR UNKNOWN INDICATION
     Dosage: SINGLE DOSE, I.V.
     Route: 042
  2. ASPIRIN [Concomitant]
  3. METOPROLOL [Concomitant]
  4. ATORVASTATIN [Concomitant]
  5. PANTOPRAZOLE SODIUM [Concomitant]
  6. GABAPENTIN [Concomitant]
  7. SEVELAMER [Concomitant]
  8. RENAL CAPSULES (VITAMIN B COMPLEX) [Concomitant]

REACTIONS (3)
  - HAEMODIALYSIS [None]
  - NEPHROGENIC SYSTEMIC FIBROSIS [None]
  - RENAL FAILURE CHRONIC [None]
